FAERS Safety Report 4373723-0 (Version None)
Quarter: 2004Q2

REPORT INFORMATION
  Report Type: 
  Country: None (occurrence: None)
  Receive Date: 20040607
  Receipt Date: 20040607
  Transmission Date: 20050107
  Serious: Yes (Other)
  Sender: FDA-Public Use
  Company Number: None

PATIENT
  Age: 36 Year
  Sex: Female
  Weight: 59.8748 kg

DRUGS (1)
  1. LAMICTAL [Suspect]
     Indication: EPILEPSY
     Dosage: 500 MG/DA 3 TIMES: ORAL
     Route: 048
     Dates: start: 19980829, end: 20040605

REACTIONS (1)
  - PHARMACEUTICAL PRODUCT COMPLAINT [None]
